FAERS Safety Report 8453597-9 (Version None)
Quarter: 2012Q2

REPORT INFORMATION
  Report Type: 
  Country: None (occurrence: None)
  Receive Date: 20120620
  Receipt Date: 20120613
  Transmission Date: 20120825
  Serious: Yes (Hospitalization, Disabling, Other)
  Sender: FDA-Public Use
  Company Number: US-MERCK-1107USA03601

PATIENT
  Age: 65 Year
  Sex: Female
  Weight: 57 kg

DRUGS (7)
  1. FOSAMAX [Suspect]
     Indication: OSTEOPENIA
     Route: 048
     Dates: start: 19980420, end: 20001001
  2. BONIVA [Suspect]
     Indication: OSTEOPOROSIS
     Route: 048
     Dates: start: 20080902, end: 20100101
  3. FOSAMAX [Suspect]
     Route: 048
     Dates: start: 20001101, end: 20080801
  4. FOSAMAX [Suspect]
     Route: 048
     Dates: start: 20001101, end: 20080801
  5. VITAMIN D (UNSPECIFIED) [Concomitant]
     Route: 065
  6. FOSAMAX [Suspect]
     Indication: OSTEOPOROSIS
     Route: 048
     Dates: start: 19980420, end: 20001001
  7. CALCIUM (UNSPECIFIED) [Concomitant]
     Route: 065

REACTIONS (35)
  - OSTEONECROSIS OF JAW [None]
  - TEMPOROMANDIBULAR JOINT SYNDROME [None]
  - MELANOCYTIC NAEVUS [None]
  - IRON DEFICIENCY ANAEMIA [None]
  - BLOOD CHOLESTEROL INCREASED [None]
  - BONE DISORDER [None]
  - DEVICE FAILURE [None]
  - GASTROOESOPHAGEAL REFLUX DISEASE [None]
  - VITAMIN D DEFICIENCY [None]
  - VARICOSE VEIN [None]
  - SOFT TISSUE INFLAMMATION [None]
  - FISTULA DISCHARGE [None]
  - INTRAOCULAR PRESSURE TEST ABNORMAL [None]
  - PYOGENIC GRANULOMA [None]
  - ORAL TORUS [None]
  - MYOFASCIAL PAIN SYNDROME [None]
  - CERUMEN IMPACTION [None]
  - BLOOD PRESSURE INCREASED [None]
  - OSTEITIS [None]
  - ORAL MUCOSAL ERYTHEMA [None]
  - ORAL INFECTION [None]
  - TOOTH INFECTION [None]
  - TOOTH DISORDER [None]
  - FATIGUE [None]
  - ABSCESS [None]
  - RENAL CYST [None]
  - UTERINE CERVIX ATROPHY [None]
  - HERPES ZOSTER [None]
  - CARPAL TUNNEL SYNDROME [None]
  - OSTEOMYELITIS [None]
  - MITRAL VALVE PROLAPSE [None]
  - OROANTRAL FISTULA [None]
  - NECROSIS [None]
  - LENS DISORDER [None]
  - GINGIVITIS [None]
